FAERS Safety Report 7152479-2 (Version None)
Quarter: 2010Q4

REPORT INFORMATION
  Report Type: 
  Country: None (occurrence: None)
  Receive Date: 20101213
  Receipt Date: 20101201
  Transmission Date: 20110411
  Serious: No
  Sender: FDA-Public Use
  Company Number: US-PFIZER INC-US-WYE-H18504010

PATIENT
  Sex: Female

DRUGS (8)
  1. EFFEXOR XR [Suspect]
     Dosage: 37.5 MG, 1X/DAY
  2. ADVAIR DISKUS 100/50 [Concomitant]
     Dosage: 500 UG, 2X/DAY
  3. COZAAR [Concomitant]
     Dosage: 50 MG, 1X/DAY
     Dates: start: 20100414
  4. COZAAR [Concomitant]
     Dosage: 100 MG, 1X/DAY
  5. K-DUR [Concomitant]
     Indication: MUSCLE SPASMS
     Dosage: 10 MEQ, 2X/DAY
  6. ALBUTEROL [Concomitant]
     Dosage: 90 UG, AS NEEDED
  7. FENOFIBRIC ACID [Concomitant]
     Dosage: 135 MG, UNK
  8. VICODIN ES [Concomitant]
     Indication: CERVICAL SPINAL STENOSIS
     Dosage: 750 MG, AS NEEDED

REACTIONS (4)
  - CHEST PAIN [None]
  - DRUG WITHDRAWAL SYNDROME [None]
  - FATIGUE [None]
  - TINNITUS [None]
